FAERS Safety Report 7028087-0 (Version None)
Quarter: 2010Q4

REPORT INFORMATION
  Report Type: 
  Country: None (occurrence: None)
  Receive Date: 20101005
  Receipt Date: 20100921
  Transmission Date: 20110411
  Serious: Yes (Hospitalization, Other)
  Sender: FDA-Public Use
  Company Number: IT-RANBAXY-2010RR-38446

PATIENT
  Age: 45 Year
  Sex: Female

DRUGS (3)
  1. SIMVASTATIN [Suspect]
     Indication: HYPERCHOLESTEROLAEMIA
     Dosage: 20 MG, UNK
     Dates: start: 20090701
  2. CYCLOSPORINE [Suspect]
     Indication: ALOPECIA UNIVERSALIS
     Dosage: 200 MG, BID
     Dates: start: 20090301
  3. AZATHIOPRINE [Concomitant]
     Indication: ALOPECIA UNIVERSALIS
     Dosage: UNK
     Dates: start: 20090101

REACTIONS (2)
  - DRUG INTERACTION [None]
  - RENAL FAILURE ACUTE [None]
